FAERS Safety Report 10038819 (Version 2)
Quarter: 2014Q2

REPORT INFORMATION
  Report Type: Spontaneous
  Country: US (occurrence: US)
  Receive Date: 20140326
  Receipt Date: 20140429
  Transmission Date: 20141212
  Serious: Yes (Death)
  Sender: FDA-Public Use
  Company Number: US-GLAXOSMITHKLINE-A1066329A

PATIENT
  Age: 72 Year
  Sex: Male

DRUGS (12)
  1. VOTRIENT [Suspect]
     Indication: HEPATIC CANCER
     Dosage: 800MG PER DAY
     Route: 048
     Dates: start: 20130531
  2. ASPIRIN [Concomitant]
  3. BENAZEPRIL [Concomitant]
  4. PLAVIX [Concomitant]
  5. STOOL SOFTENER [Concomitant]
  6. IRON [Concomitant]
  7. FUROSEMIDE [Concomitant]
  8. HYDRALAZINE [Concomitant]
  9. LATANOPROST [Concomitant]
  10. METFORMIN [Concomitant]
  11. METOPROLOL [Concomitant]
  12. SIMVASTATIN [Concomitant]

REACTIONS (1)
  - Death [Fatal]
